FAERS Safety Report 6945012-9 (Version None)
Quarter: 2010Q3

REPORT INFORMATION
  Report Type: 
  Country: None (occurrence: None)
  Receive Date: 20100810
  Receipt Date: 20100726
  Transmission Date: 20110219
  Serious: Yes (Hospitalization)
  Sender: FDA-Public Use
  Company Number: QBSAER-00001

PATIENT
  Age: 80 Year
  Sex: Female

DRUGS (5)
  1. PREVAGEN (APOAEQUORIN) 10 MG, QUINCY BIOSCIENCE INC. [Suspect]
     Dosage: ONE CAPSULE, QD, ORAL
     Route: 048
     Dates: start: 20100522, end: 20100621
  2. MEDICATION FOR PARKINSON'S DISEASE [Concomitant]
  3. MEDICATION FOR HYPERTENSION [Concomitant]
  4. MEDICATION FOR ARTHRITIS [Concomitant]
  5. MEDICATION FOR COLITIS [Concomitant]

REACTIONS (4)
  - DIZZINESS [None]
  - FALL [None]
  - HIP FRACTURE [None]
  - UNEVALUABLE EVENT [None]
